FAERS Safety Report 12187601 (Version 1)
Quarter: 2016Q1

REPORT INFORMATION
  Report Type: Spontaneous
  Country: US (occurrence: None)
  Receive Date: 20160316
  Receipt Date: 20160316
  Transmission Date: 20160526
  Serious: No
  Sender: FDA-Public Use
  Company Number: None

PATIENT
  Age: 76 Year
  Sex: Male

DRUGS (14)
  1. ASPIRIN. [Concomitant]
     Active Substance: ASPIRIN
  2. PAROXETINE [Concomitant]
     Active Substance: PAROXETINE\PAROXETINE HYDROCHLORIDE
  3. FERROUS SULF [Concomitant]
  4. OXYCONTIN [Concomitant]
     Active Substance: OXYCODONE HYDROCHLORIDE
  5. XANAX [Concomitant]
     Active Substance: ALPRAZOLAM
  6. BUPROPION. [Concomitant]
     Active Substance: BUPROPION
  7. SIMVASTATIN. [Concomitant]
     Active Substance: SIMVASTATIN
  8. LISIN/HCTZ [Concomitant]
  9. NICOTINE. [Concomitant]
     Active Substance: NICOTINE
  10. OXYCODONE AND ACETAMINOPHEN [Concomitant]
     Active Substance: ACETAMINOPHEN\OXYCODONE HYDROCHLORIDE
  11. DIPHEN/ATROP [Concomitant]
     Active Substance: ATROPINE SULFATE\DIPHENOXYLATE
  12. CAPECITABINE 500 MG TEVA [Suspect]
     Active Substance: CAPECITABINE
     Route: 048
     Dates: start: 20160116
  13. ONDANSETRON [Concomitant]
     Active Substance: ONDANSETRON
  14. VIT B-12 [Concomitant]

REACTIONS (3)
  - Fatigue [None]
  - Muscular weakness [None]
  - Bone pain [None]

NARRATIVE: CASE EVENT DATE: 20160116
